FAERS Safety Report 18972837 (Version 1)
Quarter: 2021Q1

REPORT INFORMATION
  Report Type: Spontaneous
  Country: US (occurrence: US)
  Receive Date: 20210305
  Receipt Date: 20210305
  Transmission Date: 20210420
  Serious: No
  Sender: FDA-Public Use
  Company Number: None

PATIENT
  Age: 73 Year
  Sex: Female
  Weight: 55.2 kg

DRUGS (22)
  1. POLYCARBOPHIL [Concomitant]
     Active Substance: POLYCARBOPHIL
  2. DEFERASIROX. [Suspect]
     Active Substance: DEFERASIROX
     Indication: ANAEMIA
     Route: 048
     Dates: start: 20210301
  3. BENZONATATE. [Concomitant]
     Active Substance: BENZONATATE
  4. COLACE [Concomitant]
     Active Substance: DOCUSATE SODIUM
  5. DEXTROMETHORPHAN?GUAIFENESIN [Concomitant]
     Active Substance: DEXTROMETHORPHAN\GUAIFENESIN
  6. HYDROXYZINE HCL [Concomitant]
     Active Substance: HYDROXYZINE HYDROCHLORIDE
  7. LEVOTHYROXINE SODIUM. [Concomitant]
     Active Substance: LEVOTHYROXINE SODIUM
  8. BONIVA [Concomitant]
     Active Substance: IBANDRONATE SODIUM
  9. KENALOG [Concomitant]
     Active Substance: TRIAMCINOLONE ACETONIDE
  10. LUSPATERCEPT?AAMT [Concomitant]
     Active Substance: LUSPATERCEPT-AAMT
  11. MULTIVITAMIN + MINERAL [Concomitant]
     Active Substance: MINERALS\VITAMINS
  12. MUPIROCIN. [Concomitant]
     Active Substance: MUPIROCIN
  13. POLYETHYLENE GLYCOL 3350. [Concomitant]
     Active Substance: POLYETHYLENE GLYCOL 3350
  14. MURO 128 [Concomitant]
     Active Substance: SODIUM CHLORIDE
  15. CALCIUM CITRATE?VITAMIN D3 [Concomitant]
     Active Substance: CALCIUM CITRATE\CHOLECALCIFEROL
  16. LORATADINE. [Concomitant]
     Active Substance: LORATADINE
  17. CARBOXYMETHYLCELLULOSE?GLYCERN [Concomitant]
  18. FRESHKOTE [Concomitant]
     Active Substance: POLYVINYL ALCOHOL\POVIDONE
  19. OXYMETAZOLINE HCL [Concomitant]
     Active Substance: OXYMETAZOLINE HYDROCHLORIDE
  20. PRESERVISION AREDS 2 [Concomitant]
     Active Substance: MINERALS\VITAMINS
  21. ACETAMINOPHEN. [Concomitant]
     Active Substance: ACETAMINOPHEN
  22. PANTOPRAZOLE SODIUM. [Concomitant]
     Active Substance: PANTOPRAZOLE SODIUM

REACTIONS (1)
  - Diarrhoea [None]

NARRATIVE: CASE EVENT DATE: 20210303
